FAERS Safety Report 7767695-6 (Version None)
Quarter: 2011Q3

REPORT INFORMATION
  Report Type: 
  Country: None (occurrence: None)
  Receive Date: 20110922
  Receipt Date: 20110916
  Transmission Date: 20111222
  Serious: Yes (Hospitalization)
  Sender: FDA-Public Use
  Company Number: GB-PFIZER INC-2011219521

PATIENT
  Age: 1 Year
  Sex: Male
  Weight: 11.4 kg

DRUGS (7)
  1. PHENYTOIN [Suspect]
     Indication: EPILEPSY
     Dosage: 16 ML, 2X/DAY
     Route: 048
     Dates: start: 20100527
  2. TIMOLOL [Concomitant]
     Dosage: 1 DF, 3X/DAY
     Route: 047
  3. CLOBAZAM [Concomitant]
     Indication: STURGE-WEBER SYNDROME
     Dosage: 5 MG, 2X/DAY
     Route: 048
     Dates: start: 20110601
  4. BROMIDES [Concomitant]
     Indication: STURGE-WEBER SYNDROME
     Dosage: 480 MG, 1X/DAY
     Route: 048
     Dates: start: 20110601
  5. ACETYLSALICYLIC ACID [Concomitant]
     Indication: STURGE-WEBER SYNDROME
     Dosage: 15 MG, 1X/DAY
     Route: 048
  6. DORZOLAMIDE [Concomitant]
     Dosage: 1 DF, 3X/DAY
     Route: 047
  7. CARBAMAZEPINE [Concomitant]
     Indication: STURGE-WEBER SYNDROME
     Dosage: 120 MG, 2X/DAY

REACTIONS (3)
  - HYPOTONIA [None]
  - SOMNOLENCE [None]
  - LETHARGY [None]
